FAERS Safety Report 11596405 (Version 1)
Quarter: 2015Q4

REPORT INFORMATION
  Report Type: Spontaneous
  Country: US (occurrence: None)
  Receive Date: 20151005
  Receipt Date: 20151005
  Transmission Date: 20160304
  Serious: Yes (Disabling, Other)
  Sender: FDA-Public Use
  Company Number: None

PATIENT
  Age: 42 Year
  Sex: Male
  Weight: 72.58 kg

DRUGS (3)
  1. MAGNESIUM CITRATE. [Concomitant]
     Active Substance: MAGNESIUM CITRATE
  2. VITAMIN D [Concomitant]
     Active Substance: CHOLECALCIFEROL
  3. CIPROFLOXACIN. [Suspect]
     Active Substance: CIPROFLOXACIN
     Indication: URINARY TRACT INFECTION
     Dosage: 1 PILL
     Route: 048
     Dates: start: 20150923, end: 20150925

REACTIONS (11)
  - Chills [None]
  - Gait disturbance [None]
  - Headache [None]
  - Arthralgia [None]
  - Hypoaesthesia [None]
  - Insomnia [None]
  - Toothache [None]
  - Sleep disorder [None]
  - Pain [None]
  - Paraesthesia [None]
  - Hypophagia [None]

NARRATIVE: CASE EVENT DATE: 20150926
